FAERS Safety Report 10640764 (Version 1)
Quarter: 2014Q4

REPORT INFORMATION
  Report Type: Spontaneous
  Country: BR (occurrence: BR)
  Receive Date: 20141209
  Receipt Date: 20141209
  Transmission Date: 20150529
  Serious: Yes (Other)
  Sender: FDA-Public Use
  Company Number: BR-BAYER-2014-178687

PATIENT
  Age: 38 Year
  Sex: Female

DRUGS (3)
  1. BETAFERON [Suspect]
     Active Substance: INTERFERON BETA-1B
     Indication: MULTIPLE SCLEROSIS
     Dosage: 1 ML, OW
     Route: 058
     Dates: end: 201310
  2. BETAFERON [Suspect]
     Active Substance: INTERFERON BETA-1B
     Indication: MULTIPLE SCLEROSIS
     Dosage: 1 ML, QOD
     Route: 058
     Dates: start: 2000
  3. LORAZEPAM. [Concomitant]
     Active Substance: LORAZEPAM
     Indication: SLEEP DISORDER THERAPY
     Dosage: 2 DF, QD
     Route: 048
     Dates: start: 201308

REACTIONS (3)
  - Depression [Recovering/Resolving]
  - Inappropriate schedule of drug administration [None]
  - Multiple sclerosis [Unknown]

NARRATIVE: CASE EVENT DATE: 201307
